FAERS Safety Report 17510432 (Version 1)
Quarter: 2020Q1

REPORT INFORMATION
  Report Type: Spontaneous
  Country: GB (occurrence: GB)
  Receive Date: 20200306
  Receipt Date: 20200306
  Transmission Date: 20200409
  Serious: Yes (Other)
  Sender: FDA-Public Use
  Company Number: GB-GALDERMA-GB2020011023

PATIENT
  Age: 25 Year
  Sex: Female
  Weight: 51.7 kg

DRUGS (2)
  1. EPIDUO [Suspect]
     Active Substance: ADAPALENE\BENZOYL PEROXIDE
     Indication: ACNE
     Route: 061
     Dates: start: 20200206, end: 20200207
  2. DITROPAN [Concomitant]
     Active Substance: OXYBUTYNIN CHLORIDE
     Indication: PRODUCT USED FOR UNKNOWN INDICATION
     Route: 065

REACTIONS (12)
  - Application site warmth [Unknown]
  - Application site infection [Recovered/Resolved]
  - Swelling [Recovered/Resolved]
  - Pain of skin [Unknown]
  - Erythema [Unknown]
  - Application site rash [Unknown]
  - Hypersensitivity [Unknown]
  - Application site pruritus [Not Recovered/Not Resolved]
  - Dry skin [Not Recovered/Not Resolved]
  - Application site burn [Unknown]
  - Skin burning sensation [Recovering/Resolving]
  - Application site swelling [Recovered/Resolved]

NARRATIVE: CASE EVENT DATE: 202002
